FAERS Safety Report 10163873 (Version 4)
Quarter: 2016Q3

REPORT INFORMATION
  Report Type: Report from Study
  Country: CA (occurrence: CA)
  Receive Date: 20140509
  Receipt Date: 20160830
  Transmission Date: 20161108
  Serious: Yes (Other)
  Sender: FDA-Public Use
  Company Number: CA-ABBVIE-13P-028-1039297-00

PATIENT
  Age: 61 Year
  Sex: Male
  Weight: 129.39 kg

DRUGS (6)
  1. LUPRON DEPOT [Suspect]
     Active Substance: LEUPROLIDE ACETATE
     Indication: PROSTATE CANCER
     Dosage: 4 MONTH DEPOT
     Route: 030
     Dates: start: 20120127
  2. PREDNISONE. [Concomitant]
     Active Substance: PREDNISONE
     Indication: PRODUCT USED FOR UNKNOWN INDICATION
  3. DENOSUMAB [Concomitant]
     Active Substance: DENOSUMAB
     Indication: PRODUCT USED FOR UNKNOWN INDICATION
  4. PROCAL D [Concomitant]
     Indication: PRODUCT USED FOR UNKNOWN INDICATION
  5. LUPRON DEPOT [Suspect]
     Active Substance: LEUPROLIDE ACETATE
     Route: 030
  6. ZYTIGA [Concomitant]
     Active Substance: ABIRATERONE ACETATE
     Indication: PRODUCT USED FOR UNKNOWN INDICATION

REACTIONS (11)
  - Prostate cancer [Not Recovered/Not Resolved]
  - Stress [Unknown]
  - Metastases to spine [Unknown]
  - Hypertension [Unknown]
  - Fatigue [Unknown]
  - Metastasis [Not Recovered/Not Resolved]
  - Metastases to lung [Unknown]
  - Prostatic specific antigen increased [Not Recovered/Not Resolved]
  - General physical health deterioration [Not Recovered/Not Resolved]
  - Clavicle fracture [Unknown]
  - Fracture pain [Unknown]

NARRATIVE: CASE EVENT DATE: 201210
